FAERS Safety Report 13467489 (Version 1)
Quarter: 2017Q2

REPORT INFORMATION
  Report Type: Spontaneous
  Country: US (occurrence: US)
  Receive Date: 20170421
  Receipt Date: 20170421
  Transmission Date: 20170830
  Serious: Yes (Other)
  Sender: FDA-Public Use
  Company Number: US-BIOGEN-2017BI00388489

PATIENT
  Sex: Female

DRUGS (1)
  1. AVONEX [Suspect]
     Active Substance: INTERFERON BETA-1A
     Indication: MULTIPLE SCLEROSIS
     Route: 065
     Dates: start: 20150707

REACTIONS (5)
  - Cerebral disorder [Unknown]
  - Multiple sclerosis relapse [Recovered/Resolved]
  - Myelitis [Unknown]
  - Central nervous system lesion [Unknown]
  - Sleep disorder [Recovered/Resolved]
